FAERS Safety Report 15868946 (Version 1)
Quarter: 2019Q1

REPORT INFORMATION
  Report Type: Spontaneous
  Country: FR (occurrence: FR)
  Receive Date: 20190125
  Receipt Date: 20190125
  Transmission Date: 20190417
  Serious: Yes (Hospitalization)
  Sender: FDA-Public Use
  Company Number: FR-TELIGENT, INC-IGIL20190037

PATIENT
  Age: 42 Year
  Sex: Male
  Weight: 79 kg

DRUGS (2)
  1. CEFTAZIDIME. [Suspect]
     Active Substance: CEFTAZIDIME
     Indication: ERYSIPELAS
     Dosage: 3 GRAMS
     Route: 042
     Dates: start: 20181201, end: 20181208
  2. CIFLOX [Suspect]
     Active Substance: CIPROFLOXACIN
     Indication: ERYSIPELAS
     Dosage: 1000 MG
     Route: 048
     Dates: start: 20181201, end: 20181208

REACTIONS (2)
  - Erythema [Recovering/Resolving]
  - Pruritus [Recovering/Resolving]

NARRATIVE: CASE EVENT DATE: 20181205
